FAERS Safety Report 4907404-9 (Version None)
Quarter: 2006Q1

REPORT INFORMATION
  Report Type: 
  Country: None (occurrence: None)
  Receive Date: 20060208
  Receipt Date: 20060208
  Transmission Date: 20060701
  Serious: No
  Sender: FDA-Public Use
  Company Number: None

PATIENT
  Age: 76 Year
  Sex: Male
  Weight: 69.2 kg

DRUGS (12)
  1. LITHIUM 150 MG [Suspect]
     Indication: BIPOLAR DISORDER
     Dosage: 150 MG TID PO
     Route: 048
     Dates: start: 20050701
  2. ASPIRIN [Concomitant]
  3. BUPROPION HCL [Concomitant]
  4. FELODIPINE [Concomitant]
  5. HYDROCORTISONE [Concomitant]
  6. LITHIUM CARBONATE [Concomitant]
  7. RISPERIDONE [Concomitant]
  8. SENNOSIDES [Concomitant]
  9. APAP TAB [Concomitant]
  10. COLACE [Concomitant]
  11. SINEMET [Concomitant]
  12. SYMMETREL [Concomitant]

REACTIONS (1)
  - THERAPEUTIC AGENT TOXICITY [None]
